FAERS Safety Report 10539616 (Version 2)
Quarter: 2014Q4

REPORT INFORMATION
  Report Type: Spontaneous
  Country: US (occurrence: US)
  Receive Date: 20141023
  Receipt Date: 20141023
  Transmission Date: 20150529
  Serious: No
  Sender: FDA-Public Use
  Company Number: US-ALLERGAN-1315837US

PATIENT
  Age: 75 Year
  Sex: Female

DRUGS (2)
  1. COMBIGAN[R] [Suspect]
     Active Substance: BRIMONIDINE TARTRATE\TIMOLOL MALEATE
     Indication: GLAUCOMA
     Dosage: 1 GTT, BID
     Route: 047
     Dates: start: 201308, end: 20131005
  2. MOISTURIZER [Concomitant]
     Active Substance: UNSPECIFIED INGREDIENT
     Indication: PRODUCT USED FOR UNKNOWN INDICATION

REACTIONS (8)
  - Skin irritation [Recovered/Resolved]
  - Skin exfoliation [Recovering/Resolving]
  - Erythema [Recovering/Resolving]
  - Lacrimation increased [Not Recovered/Not Resolved]
  - Accidental exposure to product [Unknown]
  - Pruritus [Recovered/Resolved]
  - Dry skin [Recovering/Resolving]
  - Expired product administered [Unknown]
